FAERS Safety Report 13181635 (Version 1)
Quarter: 2017Q1

REPORT INFORMATION
  Report Type: Report from Study
  Country: US (occurrence: US)
  Receive Date: 20170202
  Receipt Date: 20170202
  Transmission Date: 20170428
  Serious: Yes (Hospitalization)
  Sender: FDA-Public Use
  Company Number: US-GILEAD-2016-0244207

PATIENT
  Age: 82 Year
  Sex: Female

DRUGS (3)
  1. AMBRISENTAN [Suspect]
     Active Substance: AMBRISENTAN
     Indication: PRODUCT USED FOR UNKNOWN INDICATION
     Dosage: 5 MG, QD
     Route: 065
     Dates: start: 20140707
  2. ORENITRAM [Concomitant]
     Active Substance: TREPROSTINIL
  3. REVATIO [Concomitant]
     Active Substance: SILDENAFIL CITRATE

REACTIONS (14)
  - Peroneal nerve palsy [Unknown]
  - Malaise [Unknown]
  - Neuropathy peripheral [Unknown]
  - Paraesthesia [Unknown]
  - Dyspnoea [Unknown]
  - Pain in extremity [Unknown]
  - Gait disturbance [Unknown]
  - Mobility decreased [Unknown]
  - Dizziness [Unknown]
  - Bedridden [Unknown]
  - Nerve compression [Unknown]
  - Oxygen saturation decreased [Unknown]
  - Weight increased [Unknown]
  - Fatigue [Unknown]
